FAERS Safety Report 5192033-5 (Version None)
Quarter: 2006Q4

REPORT INFORMATION
  Report Type: 
  Country: None (occurrence: None)
  Receive Date: 20061220
  Receipt Date: 20061220
  Transmission Date: 20070319
  Serious: Yes (Hospitalization)
  Sender: FDA-Public Use
  Company Number: None

PATIENT
  Age: 73 Year
  Sex: Male

DRUGS (9)
  1. WARFARIN SODIUM [Suspect]
     Indication: ANTICOAGULANT THERAPY
     Dosage: 5MG 4X WK, 2.5 MG 3X WK  PO  CHRONIC
     Route: 048
  2. ENOXAPARIN SODIUM [Suspect]
     Indication: ANTICOAGULANT THERAPY
     Dosage: 80MG BID SQ  PAST WK
     Route: 058
  3. ZOCOR [Concomitant]
  4. DIOVAN [Concomitant]
  5. TOPROL-XL [Concomitant]
  6. WELLBUTRIN [Concomitant]
  7. LOVENOX [Concomitant]
  8. COUMADIN [Concomitant]
  9. ASPIRIN [Concomitant]

REACTIONS (5)
  - HAEMOGLOBIN DECREASED [None]
  - INTERNATIONAL NORMALISED RATIO INCREASED [None]
  - POST PROCEDURAL HAEMORRHAGE [None]
  - PRESYNCOPE [None]
  - RECTAL HAEMORRHAGE [None]
